FAERS Safety Report 12620579 (Version 1)
Quarter: 2016Q3

REPORT INFORMATION
  Report Type: Spontaneous
  Country: US (occurrence: US)
  Receive Date: 20160804
  Receipt Date: 20160804
  Transmission Date: 20161109
  Serious: No
  Sender: FDA-Public Use
  Company Number: US-BIOGEN-2016BI00272761

PATIENT
  Sex: Female

DRUGS (3)
  1. AVONEX [Suspect]
     Active Substance: INTERFERON BETA-1A
     Route: 065
     Dates: start: 20110630
  2. AVONEX [Suspect]
     Active Substance: INTERFERON BETA-1A
     Route: 058
     Dates: start: 20120801
  3. AVONEX [Suspect]
     Active Substance: INTERFERON BETA-1A
     Indication: MULTIPLE SCLEROSIS
     Route: 065
     Dates: start: 20050620, end: 20091002

REACTIONS (3)
  - Accidental underdose [Not Recovered/Not Resolved]
  - Nervousness [Unknown]
  - Device malfunction [Unknown]
